FAERS Safety Report 8097141-7 (Version None)
Quarter: 2012Q1

REPORT INFORMATION
  Report Type: 
  Country: None (occurrence: None)
  Receive Date: 20120129
  Receipt Date: 20111121
  Transmission Date: 20120608
  Serious: No
  Sender: FDA-Public Use
  Company Number: US-ABBOTT-11P-163-0876625-00

PATIENT
  Age: 47 Year
  Sex: Female

DRUGS (8)
  1. SKELAXIN [Concomitant]
     Indication: PRODUCT USED FOR UNKNOWN INDICATION
     Dosage: MUSCLE RELAXANT 800 MG TID
  2. PEPCID [Concomitant]
     Indication: GASTROOESOPHAGEAL REFLUX DISEASE
  3. LIBRAX [Concomitant]
     Indication: CROHN'S DISEASE
     Dosage: 5/2.5MG 1 IN MORNING AND NIGHT
     Route: 048
  4. HUMIRA [Suspect]
     Indication: RHEUMATOID ARTHRITIS
  5. VITAMIN D [Concomitant]
     Indication: VITAMIN D DEFICIENCY
  6. HUMIRA [Suspect]
  7. TOPAMAX [Concomitant]
     Indication: MIGRAINE
  8. SYNTHROID [Concomitant]
     Indication: THYROID DISORDER
     Dosage: .112 (2) TABLETS QD

REACTIONS (6)
  - AMNESIA [None]
  - ILL-DEFINED DISORDER [None]
  - PAIN [None]
  - BLADDER DISORDER [None]
  - HAEMANGIOMA [None]
  - SYSTEMIC LUPUS ERYTHEMATOSUS [None]
